FAERS Safety Report 15472046 (Version 6)
Quarter: 2019Q1

REPORT INFORMATION
  Report Type: Report from Study
  Country: PT (occurrence: PT)
  Receive Date: 20181008
  Receipt Date: 20190118
  Transmission Date: 20190417
  Serious: Yes (Life-Threatening, Other)
  Sender: FDA-Public Use
  Company Number: PT-BRISTOL-MYERS SQUIBB COMPANY-BMS-2018-089577

PATIENT
  Age: 30 Year
  Sex: Male

DRUGS (25)
  1. BUPRENORPHINE. [Suspect]
     Active Substance: BUPRENORPHINE
     Indication: HEPATITIS C
     Route: 065
  2. FLURAZEPAM [Suspect]
     Active Substance: FLURAZEPAM\FLURAZEPAM HYDROCHLORIDE
     Indication: CHRONIC HEPATITIS C
     Dosage: UNK
     Route: 065
  3. DIDANOSINE. [Suspect]
     Active Substance: DIDANOSINE
     Indication: CHRONIC HEPATITIS C
     Route: 065
  4. AMPHOTERICIN B. [Suspect]
     Active Substance: AMPHOTERICIN B
     Indication: HIV INFECTION
     Route: 065
  5. LOPINAVIR + RITONAVIR [Suspect]
     Active Substance: LOPINAVIR\RITONAVIR
     Indication: HEPATITIS C
     Route: 065
  6. TRAMADOL. [Suspect]
     Active Substance: TRAMADOL
     Indication: HIV INFECTION
     Dosage: UNK
     Route: 065
  7. FLURAZEPAM [Suspect]
     Active Substance: FLURAZEPAM\FLURAZEPAM HYDROCHLORIDE
     Indication: HEPATITIS C
     Route: 065
  8. TRAMADOL. [Suspect]
     Active Substance: TRAMADOL
     Indication: CHRONIC HEPATITIS C
     Route: 065
  9. ALPRAZOLAM. [Suspect]
     Active Substance: ALPRAZOLAM
     Indication: CHRONIC HEPATITIS C
     Dosage: UNK
     Route: 065
  10. DIDANOSINE. [Suspect]
     Active Substance: DIDANOSINE
     Indication: HIV INFECTION
     Dosage: UNK
     Route: 065
  11. AMPHOTERICIN B. [Suspect]
     Active Substance: AMPHOTERICIN B
     Indication: CHRONIC HEPATITIS C
     Dosage: UNK
     Route: 065
  12. AMPHOTERICIN B. [Suspect]
     Active Substance: AMPHOTERICIN B
     Indication: HEPATITIS C
     Route: 065
  13. ZIDOVUDINE. [Suspect]
     Active Substance: ZIDOVUDINE
     Indication: HEPATITIS C
     Route: 065
  14. BUPRENORPHINE. [Suspect]
     Active Substance: BUPRENORPHINE
     Indication: HIV INFECTION
     Route: 065
  15. LOPINAVIR + RITONAVIR [Suspect]
     Active Substance: LOPINAVIR\RITONAVIR
     Indication: HIV INFECTION
     Route: 065
  16. BUPRENORPHINE. [Suspect]
     Active Substance: BUPRENORPHINE
     Indication: CHRONIC HEPATITIS C
     Dosage: UNK
     Route: 065
  17. OXAZEPAM. [Suspect]
     Active Substance: OXAZEPAM
     Indication: PRODUCT USED FOR UNKNOWN INDICATION
     Dosage: UNK
     Route: 065
  18. ALPRAZOLAM. [Suspect]
     Active Substance: ALPRAZOLAM
     Indication: HEPATITIS C
     Route: 065
  19. ZIDOVUDINE. [Suspect]
     Active Substance: ZIDOVUDINE
     Indication: HIV INFECTION
     Route: 065
  20. ALPRAZOLAM. [Suspect]
     Active Substance: ALPRAZOLAM
     Indication: HIV INFECTION
     Route: 065
  21. LOPINAVIR + RITONAVIR [Suspect]
     Active Substance: LOPINAVIR\RITONAVIR
     Indication: CHRONIC HEPATITIS C
     Dosage: UNK
     Route: 065
  22. ZIDOVUDINE. [Suspect]
     Active Substance: ZIDOVUDINE
     Indication: CHRONIC HEPATITIS C
     Dosage: UNK
     Route: 065
  23. DIDANOSINE. [Suspect]
     Active Substance: DIDANOSINE
     Indication: HEPATITIS C
     Route: 065
  24. TRAMADOL. [Suspect]
     Active Substance: TRAMADOL
     Indication: HEPATITIS C
     Route: 065
  25. FLURAZEPAM [Suspect]
     Active Substance: FLURAZEPAM\FLURAZEPAM HYDROCHLORIDE
     Indication: HIV INFECTION
     Route: 065

REACTIONS (2)
  - Drug-induced liver injury [Unknown]
  - Hepatic fibrosis [Unknown]
